FAERS Safety Report 9297473 (Version 1)
Quarter: 2013Q2

REPORT INFORMATION
  Report Type: Report from Study
  Country: US (occurrence: US)
  Receive Date: 20130520
  Receipt Date: 20130520
  Transmission Date: 20140414
  Serious: Yes (Other)
  Sender: FDA-Public Use
  Company Number: US-ROCHE-1224559

PATIENT
  Age: 69 Year
  Sex: Female

DRUGS (2)
  1. ACTEMRA [Suspect]
     Indication: RHEUMATOID ARTHRITIS
     Route: 065
  2. RITUXAN [Suspect]
     Indication: RHEUMATOID ARTHRITIS
     Route: 065

REACTIONS (7)
  - Neutropenia [Unknown]
  - Leukopenia [Unknown]
  - Pyrexia [Unknown]
  - Chills [Unknown]
  - Abdominal pain [Unknown]
  - Drug effect decreased [Unknown]
  - Fatigue [Unknown]
